FAERS Safety Report 15309655 (Version 1)
Quarter: 2018Q3

REPORT INFORMATION
  Report Type: Report from Study
  Country: ES (occurrence: ES)
  Receive Date: 20180823
  Receipt Date: 20180823
  Transmission Date: 20181010
  Serious: Yes (Hospitalization)
  Sender: FDA-Public Use
  Company Number: ES-TEVA-2018-ES-946330

PATIENT
  Age: 36 Year
  Sex: Female

DRUGS (5)
  1. VALSARTAN. [Concomitant]
     Active Substance: VALSARTAN
     Indication: HYPERTENSION
     Dosage: 80 MILLIGRAM DAILY; 1?0?0 || DOSAGE UNIT FREQUENCY: 80 MG?MILLIGRAMS || DOSAGE PER DOSE: 80 MG?MILLI
     Route: 048
     Dates: start: 20141218, end: 20150327
  2. EDEMOX 250 MG COMPRIMIDOS , 20 COMPRIMIDOS [Concomitant]
     Indication: HYPERTENSION
     Dosage: 250 MILLIGRAM DAILY; 0?1?0 || DOSAGE UNIT FREQUENCY: 250 MG?MILLIGRAMS || DOSAGE PER DOSE: 250 MG?MI
     Route: 048
     Dates: start: 20141218, end: 20150327
  3. OMEPRAZOL [Concomitant]
     Active Substance: OMEPRAZOLE
     Indication: PROPHYLAXIS AGAINST GASTROINTESTINAL ULCER
     Dosage: 20 MILLIGRAM DAILY; 1 CP || DOSAGE UNIT FREQUENCY: 20 MG?MILLIGRAMS || DOSAGE PER DOSE: 20 MG?MILLIG
     Route: 048
     Dates: start: 201407
  4. ALLOPURINOL. [Suspect]
     Active Substance: ALLOPURINOL
     Indication: HYPERURICAEMIA
     Dosage: 100 MILLIGRAM DAILY; 0?1?0 || DOSAGE UNIT FREQUENCY: 100 MG?MILLIGRAMS || DOSAGE PER DOSE: 100 MG?MI
     Route: 048
     Dates: start: 20141218, end: 20150327
  5. PREDNISONA [Concomitant]
     Active Substance: PREDNISONE
     Indication: GLOMERULONEPHRITIS
     Dosage: 50 MG IN DROP DOSE || FREQUENCY UNIT: 0 DAY
     Route: 048
     Dates: start: 201407

REACTIONS (4)
  - Drug reaction with eosinophilia and systemic symptoms [Recovered/Resolved]
  - Tubulointerstitial nephritis [Recovered/Resolved]
  - Liver disorder [Recovered/Resolved]
  - Pancreatitis [Recovered/Resolved]

NARRATIVE: CASE EVENT DATE: 20150307
